FAERS Safety Report 13987450 (Version 1)
Quarter: 2017Q3

REPORT INFORMATION
  Report Type: Spontaneous
  Country: ES (occurrence: ES)
  Receive Date: 20170919
  Receipt Date: 20170919
  Transmission Date: 20171128
  Serious: Yes (Hospitalization)
  Sender: FDA-Public Use
  Company Number: ES-PFIZER INC-2017397784

PATIENT
  Age: 3 Year
  Sex: Male

DRUGS (1)
  1. GENOTONORM [Suspect]
     Active Substance: SOMATROPIN
     Indication: GROWTH HORMONE DEFICIENCY
     Dosage: 0.35 (NO UNIT PROVIDED), 1X/DAY
     Route: 058
     Dates: start: 20160201

REACTIONS (2)
  - Incorrect dose administered [Unknown]
  - Decreased appetite [Unknown]
